FAERS Safety Report 8963166 (Version 1)
Quarter: 2012Q4

REPORT INFORMATION
  Report Type: 
  Country: CA (occurrence: CA)
  Receive Date: 20121213
  Receipt Date: 20121213
  Transmission Date: 20130627
  Serious: Yes (Other)
  Sender: FDA-Public Use
  Company Number: PHHY2012CA101926

PATIENT
  Age: 86 Year
  Sex: Male

DRUGS (1)
  1. SANDOSTATIN LAR [Suspect]
     Indication: GASTROINTESTINAL ANGIODYSPLASIA
     Dosage: 100 ug, BID
     Route: 058
     Dates: start: 20121030, end: 20121113

REACTIONS (3)
  - Blood pressure diastolic decreased [Unknown]
  - Blood pressure systolic increased [Unknown]
  - Diarrhoea [Unknown]
